FAERS Safety Report 20141838 (Version 1)
Quarter: 2021Q4

REPORT INFORMATION
  Report Type: Spontaneous
  Country: PL (occurrence: PL)
  Receive Date: 20211202
  Receipt Date: 20211202
  Transmission Date: 20220303
  Serious: Yes (Hospitalization, Other)
  Sender: FDA-Public Use
  Company Number: PL-NOVARTISPH-NVSC2021PL267813

PATIENT
  Age: 71 Year
  Sex: Male

DRUGS (49)
  1. SACUBITRIL\VALSARTAN [Suspect]
     Active Substance: SACUBITRIL\VALSARTAN
     Indication: Cardiac failure
     Dosage: 100 MG, QD
     Route: 065
     Dates: start: 201804
  2. SACUBITRIL\VALSARTAN [Suspect]
     Active Substance: SACUBITRIL\VALSARTAN
     Dosage: 100 MG
     Route: 065
     Dates: start: 201905
  3. SACUBITRIL\VALSARTAN [Suspect]
     Active Substance: SACUBITRIL\VALSARTAN
     Dosage: 200 UNK
     Route: 065
     Dates: start: 202101
  4. SACUBITRIL\VALSARTAN [Suspect]
     Active Substance: SACUBITRIL\VALSARTAN
     Dosage: 200 MG
     Route: 065
     Dates: start: 202103
  5. SACUBITRIL\VALSARTAN [Suspect]
     Active Substance: SACUBITRIL\VALSARTAN
     Dosage: 100 MG
     Route: 065
     Dates: start: 202107
  6. SACUBITRIL\VALSARTAN [Suspect]
     Active Substance: SACUBITRIL\VALSARTAN
     Dosage: 100 MG
     Route: 065
     Dates: start: 202109
  7. SACUBITRIL\VALSARTAN [Suspect]
     Active Substance: SACUBITRIL\VALSARTAN
     Dosage: 100 MG
     Route: 065
     Dates: start: 202109
  8. SACUBITRIL\VALSARTAN [Suspect]
     Active Substance: SACUBITRIL\VALSARTAN
     Dosage: 0.5 DF, BID (49MG/51MG)
     Route: 065
  9. TORSEMIDE [Suspect]
     Active Substance: TORSEMIDE
     Indication: Product used for unknown indication
     Dosage: 5 MG, QD
     Route: 065
     Dates: start: 202107
  10. TORSEMIDE [Suspect]
     Active Substance: TORSEMIDE
     Dosage: 10 UNK
     Route: 065
     Dates: start: 202109
  11. TORSEMIDE [Suspect]
     Active Substance: TORSEMIDE
     Dosage: 10 MG, QD
     Route: 065
     Dates: start: 202109
  12. TORSEMIDE [Suspect]
     Active Substance: TORSEMIDE
     Dosage: 10 MG, QD (1 TABLET IN THE EVENING)
     Route: 065
  13. SILDENAFIL [Suspect]
     Active Substance: SILDENAFIL
     Indication: Product used for unknown indication
     Dosage: 50 MG
     Route: 065
     Dates: start: 201804
  14. SILDENAFIL [Suspect]
     Active Substance: SILDENAFIL
     Dosage: 50 UNK
     Route: 065
     Dates: start: 201905
  15. SILDENAFIL [Suspect]
     Active Substance: SILDENAFIL
     Dosage: 50 UNK
     Route: 065
     Dates: start: 202101
  16. SILDENAFIL [Suspect]
     Active Substance: SILDENAFIL
     Dosage: 50 UNK
     Route: 065
     Dates: start: 202103
  17. ALLOPURINOL [Suspect]
     Active Substance: ALLOPURINOL
     Indication: Product used for unknown indication
     Dosage: UNK
     Route: 065
  18. ATORVASTATIN [Suspect]
     Active Substance: ATORVASTATIN
     Indication: Product used for unknown indication
     Dosage: 10 MG, QD
     Route: 065
  19. CARVEDILOL [Suspect]
     Active Substance: CARVEDILOL
     Indication: Product used for unknown indication
     Dosage: 6.25 MG, QD
     Route: 065
     Dates: start: 201804
  20. CARVEDILOL [Suspect]
     Active Substance: CARVEDILOL
     Dosage: 6.25 UNK
     Route: 065
     Dates: start: 201905
  21. CARVEDILOL [Suspect]
     Active Substance: CARVEDILOL
     Dosage: 13 MG, QD
     Route: 065
     Dates: start: 202101
  22. CARVEDILOL [Suspect]
     Active Substance: CARVEDILOL
     Dosage: 13 MG, QD
     Route: 065
     Dates: start: 202103
  23. CARVEDILOL [Suspect]
     Active Substance: CARVEDILOL
     Dosage: 13 MG, QD
     Route: 065
     Dates: start: 202107
  24. CARVEDILOL [Suspect]
     Active Substance: CARVEDILOL
     Dosage: 13 MG, QD
     Route: 065
     Dates: start: 202109
  25. CARVEDILOL [Suspect]
     Active Substance: CARVEDILOL
     Dosage: 13 MG, QD
     Route: 065
     Dates: start: 202109
  26. CARVEDILOL [Suspect]
     Active Substance: CARVEDILOL
     Dosage: 6.25 MG, BID
     Route: 065
  27. SPIRONOLACTONE [Suspect]
     Active Substance: SPIRONOLACTONE
     Indication: Product used for unknown indication
     Dosage: 100 MG, QD
     Route: 065
     Dates: start: 201804
  28. SPIRONOLACTONE [Suspect]
     Active Substance: SPIRONOLACTONE
     Dosage: 100 UNK
     Route: 065
     Dates: start: 201905
  29. SPIRONOLACTONE [Suspect]
     Active Substance: SPIRONOLACTONE
     Dosage: 100 UNK
     Route: 065
     Dates: start: 202101
  30. SPIRONOLACTONE [Suspect]
     Active Substance: SPIRONOLACTONE
     Dosage: 50 MG
     Route: 065
     Dates: start: 202103
  31. FUROSEMIDE [Suspect]
     Active Substance: FUROSEMIDE
     Indication: Product used for unknown indication
     Dosage: 120 MG, QD
     Route: 065
     Dates: start: 201804
  32. FUROSEMIDE [Suspect]
     Active Substance: FUROSEMIDE
     Dosage: 200 UNK
     Route: 065
     Dates: start: 201905
  33. FUROSEMIDE [Suspect]
     Active Substance: FUROSEMIDE
     Dosage: 160 UNK
     Route: 065
     Dates: start: 202101
  34. FUROSEMIDE [Suspect]
     Active Substance: FUROSEMIDE
     Dosage: 80 UNK
     Route: 065
     Dates: start: 202103
  35. FUROSEMIDE [Suspect]
     Active Substance: FUROSEMIDE
     Dosage: 40 UNK
     Route: 065
     Dates: start: 202107
  36. FUROSEMIDE [Suspect]
     Active Substance: FUROSEMIDE
     Dosage: 40 UNK
     Route: 065
     Dates: start: 202109
  37. FUROSEMIDE [Suspect]
     Active Substance: FUROSEMIDE
     Dosage: 40 UNK
     Route: 065
     Dates: start: 202109
  38. FUROSEMIDE [Suspect]
     Active Substance: FUROSEMIDE
     Dosage: 40 MG, QD (1 TABLET IN THE MORNING)
     Route: 065
  39. HYDROCHLOROTHIAZIDE [Suspect]
     Active Substance: HYDROCHLOROTHIAZIDE
     Indication: Product used for unknown indication
     Dosage: 25 MG, QD
     Route: 065
     Dates: start: 201804
  40. HYDROCHLOROTHIAZIDE [Suspect]
     Active Substance: HYDROCHLOROTHIAZIDE
     Dosage: 25 UNK
     Route: 065
     Dates: start: 201905
  41. HYDROCHLOROTHIAZIDE [Suspect]
     Active Substance: HYDROCHLOROTHIAZIDE
     Dosage: 25 UNK
     Route: 065
     Dates: start: 202101
  42. EMPAGLIFLOZIN [Suspect]
     Active Substance: EMPAGLIFLOZIN
     Indication: Product used for unknown indication
     Dosage: 10 MG, QD
     Route: 065
     Dates: start: 201804
  43. DAPAGLIFLOZIN [Suspect]
     Active Substance: DAPAGLIFLOZIN
     Indication: Product used for unknown indication
     Dosage: 10 MG, QD
     Route: 065
     Dates: start: 202107
  44. DAPAGLIFLOZIN [Suspect]
     Active Substance: DAPAGLIFLOZIN
     Dosage: 10 UNK
     Route: 065
     Dates: start: 202109
  45. DAPAGLIFLOZIN [Suspect]
     Active Substance: DAPAGLIFLOZIN
     Dosage: 10 MG, QD
     Route: 065
     Dates: start: 202109
  46. DAPAGLIFLOZIN [Suspect]
     Active Substance: DAPAGLIFLOZIN
     Dosage: 10 MG, QD
     Route: 065
  47. APIXABAN [Suspect]
     Active Substance: APIXABAN
     Indication: Product used for unknown indication
     Dosage: 5 MG, BID
     Route: 065
  48. DIGOXIN [Suspect]
     Active Substance: DIGOXIN
     Indication: Product used for unknown indication
     Dosage: 0.1 MG, QD
     Route: 065
  49. LEVOTHYROXINE [Suspect]
     Active Substance: LEVOTHYROXINE
     Indication: Product used for unknown indication
     Dosage: UNK, QD (N50)
     Route: 065

REACTIONS (7)
  - Cardiac failure [Unknown]
  - Acute kidney injury [Unknown]
  - Congestive cardiomyopathy [Unknown]
  - Glomerular filtration rate abnormal [Unknown]
  - Lung disorder [Unknown]
  - N-terminal prohormone brain natriuretic peptide increased [Unknown]
  - Wrong technique in product usage process [Unknown]

NARRATIVE: CASE EVENT DATE: 20210301
